FAERS Safety Report 19273588 (Version 2)
Quarter: 2021Q2

REPORT INFORMATION
  Report Type: Spontaneous
  Country: US (occurrence: US)
  Receive Date: 20210519
  Receipt Date: 20210527
  Transmission Date: 20210717
  Serious: No
  Sender: FDA-Public Use
  Company Number: US-SA-2021SA164672

PATIENT
  Age: 44 Year
  Sex: Female

DRUGS (2)
  1. KEVZARA [Suspect]
     Active Substance: SARILUMAB
     Indication: RHEUMATOID ARTHRITIS
     Dosage: 200 MG, QOW
     Route: 058
     Dates: start: 20201130
  2. KEVZARA [Suspect]
     Active Substance: SARILUMAB
     Indication: POLYARTHRITIS

REACTIONS (3)
  - Joint swelling [Unknown]
  - Product use in unapproved indication [Unknown]
  - Arthralgia [Unknown]

NARRATIVE: CASE EVENT DATE: 20201130
